FAERS Safety Report 5201545-7 (Version None)
Quarter: 2006Q4

REPORT INFORMATION
  Report Type: 
  Country: None (occurrence: None)
  Receive Date: 20061005
  Receipt Date: 20051222
  Transmission Date: 20070319
  Serious: Yes (Hospitalization)
  Sender: FDA-Public Use
  Company Number: 28287

PATIENT
  Age: 40 Year
  Sex: Female

DRUGS (5)
  1. MAXAIR [Suspect]
     Indication: ASTHMA
     Dosage: 400 MCG, 4 IN 1 DAY (S)), RESPIRATORY (INHALATION)
     Route: 055
     Dates: start: 19920101
  2. AEROBID [Suspect]
     Indication: ASTHMA
  3. ACCOLATE [Suspect]
     Indication: ASTHMA
  4. ZYRTEC [Suspect]
     Indication: ASTHMA
  5. UNSPECIFIED CHEMICAL [Suspect]
     Dates: start: 19981001, end: 19981001

REACTIONS (3)
  - ASTHMA [None]
  - EXPOSURE TO TOXIC AGENT [None]
  - SYNCOPE [None]
